FAERS Safety Report 16592482 (Version 1)
Quarter: 2019Q3

REPORT INFORMATION
  Report Type: Spontaneous
  Country: US (occurrence: US)
  Receive Date: 20190718
  Receipt Date: 20190718
  Transmission Date: 20191004
  Serious: No
  Sender: FDA-Public Use
  Company Number: US-NOVOPROD-670996

PATIENT
  Age: 37 Year
  Sex: Female

DRUGS (2)
  1. FIASP [Suspect]
     Active Substance: INSULIN ASPART
     Indication: TYPE 1 DIABETES MELLITUS
     Dosage: 49.5 IU, QD
     Route: 058
     Dates: start: 201810
  2. FIASP [Suspect]
     Active Substance: INSULIN ASPART
     Dosage: DOSE INCREASED (ADDITIONAL 20 UNITS)
     Route: 058
     Dates: start: 201810

REACTIONS (3)
  - Wrong technique in product usage process [Unknown]
  - Blood glucose increased [Recovered/Resolved]
  - Product quality issue [Unknown]

NARRATIVE: CASE EVENT DATE: 20190608
